FAERS Safety Report 9502034 (Version 2)
Quarter: 2013Q4

REPORT INFORMATION
  Report Type: Spontaneous
  Country: JP (occurrence: JP)
  Receive Date: 20130905
  Receipt Date: 20131022
  Transmission Date: 20140711
  Serious: Yes (Hospitalization)
  Sender: FDA-Public Use
  Company Number: JP-ROCHE-1270806

PATIENT
  Age: 83 Year
  Sex: Male
  Weight: 53 kg

DRUGS (3)
  1. ACTEMRA [Suspect]
     Indication: RHEUMATOID ARTHRITIS
     Route: 041
     Dates: start: 20091218, end: 20130822
  2. PREDNISOLONE [Concomitant]
     Indication: RHEUMATOID ARTHRITIS
     Route: 048
     Dates: start: 20110202
  3. PREDNISOLONE [Concomitant]
     Route: 048
     Dates: start: 20130825

REACTIONS (1)
  - Interstitial lung disease [Recovered/Resolved]
